FAERS Safety Report 5206807-5 (Version None)
Quarter: 2006Q4

REPORT INFORMATION
  Report Type: 
  Country: None (occurrence: None)
  Receive Date: 20061026
  Receipt Date: 20060722
  Transmission Date: 20070319
  Serious: No
  Sender: FDA-Public Use
  Company Number: 2006092068

PATIENT
  Age: 53 Year
  Sex: Female

DRUGS (2)
  1. LYRICA [Suspect]
     Indication: BACK PAIN
     Dosage: 150 MG (50 MG, 3 IN 1 D), ORAL
     Route: 048
  2. CONTRACEPTIVE, UNSPECIFIED (CONTRACEPTIVE UNSPECIFIED) [Concomitant]

REACTIONS (1)
  - MIGRAINE [None]
